FAERS Safety Report 6819540-0 (Version None)
Quarter: 2010Q3

REPORT INFORMATION
  Report Type: 
  Country: None (occurrence: None)
  Receive Date: 20100707
  Receipt Date: 20100628
  Transmission Date: 20110219
  Serious: Yes (Hospitalization)
  Sender: FDA-Public Use
  Company Number: JP-SANOFI-AVENTIS-2010SA035989

PATIENT
  Age: 35 Year
  Sex: Female

DRUGS (1)
  1. TAXOTERE [Suspect]
     Indication: SARCOMA
     Route: 041
     Dates: start: 20100601, end: 20100601

REACTIONS (5)
  - ABDOMINAL PAIN [None]
  - BLOOD PRESSURE DECREASED [None]
  - HYPERSENSITIVITY [None]
  - OXYGEN SATURATION DECREASED [None]
  - PHOTOPSIA [None]
